FAERS Safety Report 8283188-4 (Version None)
Quarter: 2012Q1

REPORT INFORMATION
  Report Type: 
  Country: None (occurrence: None)
  Receive Date: 20120326
  Receipt Date: 20120313
  Transmission Date: 20120608
  Serious: Yes (Other)
  Sender: FDA-Public Use
  Company Number: AEUSA201200156

PATIENT
  Age: 17 Year
  Sex: Male

DRUGS (3)
  1. ZOLOFT [Concomitant]
  2. DIFLUCAN [Concomitant]
  3. GAMUNEX [Suspect]
     Indication: IMMUNOGLOBULINS DECREASED
     Dosage: 70 GM;1X; IV
     Route: 042
     Dates: start: 20120310, end: 20120310

REACTIONS (9)
  - SKIN DISCOLOURATION [None]
  - TREMOR [None]
  - INFUSION SITE REACTION [None]
  - MUSCLE SPASMS [None]
  - PYREXIA [None]
  - ANXIETY [None]
  - MALAISE [None]
  - NAUSEA [None]
  - DYSPNOEA [None]
